FAERS Safety Report 8968055 (Version 2)
Quarter: 2013Q1

REPORT INFORMATION
  Report Type: Spontaneous
  Country: JP (occurrence: JP)
  Receive Date: 20121218
  Receipt Date: 20130331
  Transmission Date: 20140127
  Serious: Yes (Death)
  Sender: FDA-Public Use
  Company Number: JP-009507513-1212JPN004141

PATIENT
  Age: 57 Year
  Sex: Male

DRUGS (2)
  1. DECADRON [Suspect]
     Dosage: 0.5 MG, QD
     Route: 048
     Dates: start: 201103, end: 201106
  2. THALIDOMIDE [Suspect]
     Route: 048

REACTIONS (1)
  - Pulmonary embolism [Fatal]
